FAERS Safety Report 4616194-9 (Version None)
Quarter: 2005Q1

REPORT INFORMATION
  Report Type: 
  Country: None (occurrence: None)
  Receive Date: 20050321
  Receipt Date: 20050310
  Transmission Date: 20050727
  Serious: Yes (Hospitalization)
  Sender: FDA-Public Use
  Company Number: GXKR2005NO00732

PATIENT
  Age: 72 Year
  Sex: Female

DRUGS (1)
  1. METFORMIN (NGX)(METFORMIN) [Suspect]
     Indication: DIABETES MELLITUS NON-INSULIN-DEPENDENT

REACTIONS (5)
  - HAEMODIALYSIS [None]
  - LACTIC ACIDOSIS [None]
  - RENAL FAILURE ACUTE [None]
  - SHOCK [None]
  - THERAPY NON-RESPONDER [None]
